FAERS Safety Report 9133818 (Version 1)
Quarter: 2013Q1

REPORT INFORMATION
  Report Type: Spontaneous
  Country: IE (occurrence: IE)
  Receive Date: 20130303
  Receipt Date: 20130303
  Transmission Date: 20140127
  Serious: No
  Sender: FDA-Public Use
  Company Number: IE-ENDO PHARMACEUTICALS INC.-VANT20110046

PATIENT
  Sex: Male

DRUGS (2)
  1. VANTAS [Suspect]
     Indication: PROSTATE CANCER
     Route: 058
     Dates: start: 2010, end: 20110718
  2. VANTAS [Suspect]
     Route: 058
     Dates: start: 20110718

REACTIONS (3)
  - Implant site fibrosis [Recovered/Resolved]
  - Complication of device removal [Recovered/Resolved]
  - Device breakage [Recovered/Resolved]
